FAERS Safety Report 4398828-X (Version None)
Quarter: 2004Q3

REPORT INFORMATION
  Report Type: 
  Country: None (occurrence: None)
  Receive Date: 20040712
  Receipt Date: 20040628
  Transmission Date: 20050211
  Serious: Yes (Other)
  Sender: FDA-Public Use
  Company Number: 2004044149

PATIENT
  Age: 68 Year
  Sex: Female
  Weight: 104.3273 kg

DRUGS (6)
  1. ZOLOFT [Suspect]
     Indication: SYSTEMIC LUPUS ERYTHEMATOSUS
  2. VALDECOXIB [Suspect]
     Indication: ARTHRITIS
     Dosage: 20 MG (20 MG, 1 IN 1 D), ORAL
     Route: 048
     Dates: start: 20040626
  3. DICLOFENAC SODIUM [Suspect]
     Indication: ILL-DEFINED DISORDER
  4. OXYBUTYNIN CHLORIDE [Concomitant]
  5. METHYLDOPA [Concomitant]
  6. PROPANOLOL HYDROCHLORIDE (PROPANOLOL HYDROCHLORIDE) [Concomitant]

REACTIONS (7)
  - ARTHRITIS [None]
  - CELLULITIS [None]
  - DYSPHAGIA [None]
  - FEELING ABNORMAL [None]
  - OSTEOPOROSIS [None]
  - PRECANCEROUS SKIN LESION [None]
  - THERAPY NON-RESPONDER [None]
